FAERS Safety Report 9757884 (Version 1)
Quarter: 2013Q4

REPORT INFORMATION
  Report Type: Spontaneous
  Country: US (occurrence: US)
  Receive Date: 20131216
  Receipt Date: 20131216
  Transmission Date: 20140711
  Serious: Yes (Other)
  Sender: FDA-Public Use
  Company Number: US-JNJFOC-20131202166

PATIENT
  Sex: Male

DRUGS (3)
  1. FENTANYL [Suspect]
     Indication: PAIN
     Route: 062
  2. OXYCODONE [Concomitant]
     Indication: PAIN
     Route: 065
  3. HYDROCODONE [Concomitant]
     Indication: PAIN
     Route: 065

REACTIONS (1)
  - Hypogonadism [Unknown]
